FAERS Safety Report 13959342 (Version 1)
Quarter: 2017Q3

REPORT INFORMATION
  Report Type: Spontaneous
  Country: US (occurrence: None)
  Receive Date: 20170911
  Receipt Date: 20170911
  Transmission Date: 20171128
  Serious: Yes (Death)
  Sender: FDA-Public Use
  Company Number: None

PATIENT
  Age: 66 Year
  Sex: Female
  Weight: 40.37 kg

DRUGS (10)
  1. PROCRIT [Concomitant]
     Active Substance: ERYTHROPOIETIN
  2. AUGMENTIN LIQUID [Concomitant]
  3. DOXYCYCLINE. [Concomitant]
     Active Substance: DOXYCYCLINE
  4. CETUXIMAB. [Suspect]
     Active Substance: CETUXIMAB
     Indication: SQUAMOUS CELL CARCINOMA
     Dosage: ROUTE - ARTERIAL
     Dates: start: 20170717
  5. LASIX [Concomitant]
     Active Substance: FUROSEMIDE
  6. DEXAMETHASONE. [Concomitant]
     Active Substance: DEXAMETHASONE
  7. CETUXIMAB. [Suspect]
     Active Substance: CETUXIMAB
     Indication: SQUAMOUS CELL CARCINOMA
     Dosage: ROUTE - ARTERIAL
     Dates: start: 20170804
  8. DOXYCYCLINE MONOHYDRATE [Concomitant]
     Active Substance: DOXYCYCLINE
  9. FERROUS SULPHATE LIQUID [Concomitant]
  10. BENADRYL [Concomitant]
     Active Substance: DIPHENHYDRAMINE HYDROCHLORIDE

REACTIONS (4)
  - Lethargy [None]
  - Somnolence [None]
  - Movement disorder [None]
  - Rectal haemorrhage [None]

NARRATIVE: CASE EVENT DATE: 20170901
